FAERS Safety Report 16979085 (Version 2)
Quarter: 2019Q4

REPORT INFORMATION
  Report Type: Spontaneous
  Country: US (occurrence: US)
  Receive Date: 20191031
  Receipt Date: 20191107
  Transmission Date: 20200122
  Serious: No
  Sender: FDA-Public Use
  Company Number: US-PFIZER INC-2019467403

PATIENT
  Age: 46 Year
  Sex: Female
  Weight: 117.91 kg

DRUGS (1)
  1. LYRICA [Suspect]
     Active Substance: PREGABALIN
     Indication: NEUROPATHY PERIPHERAL
     Dosage: 300 MG, 2X/DAY (BEEN ON 3-4 YEARS)
     Route: 048

REACTIONS (9)
  - Vomiting [Unknown]
  - Diarrhoea [Unknown]
  - Eating disorder [Unknown]
  - Withdrawal syndrome [Not Recovered/Not Resolved]
  - Dizziness [Unknown]
  - Discomfort [Unknown]
  - Insomnia [Not Recovered/Not Resolved]
  - Pain [Unknown]
  - Nausea [Unknown]

NARRATIVE: CASE EVENT DATE: 201910
